FAERS Safety Report 4446308-5 (Version None)
Quarter: 2004Q3

REPORT INFORMATION
  Report Type: 
  Country: None (occurrence: None)
  Receive Date: 20040907
  Receipt Date: 20040827
  Transmission Date: 20050211
  Serious: Yes (Hospitalization)
  Sender: FDA-Public Use
  Company Number: 2004-03832

PATIENT
  Age: 68 Year
  Sex: Male

DRUGS (2)
  1. METFORMIN HYDROCHLORIDE (WATSON LABORATORIES) (METFORMIN HDYROCHLORIDE [Suspect]
     Indication: DIABETES MELLITUS NON-INSULIN-DEPENDENT
     Dosage: 2000 MG/D X 5 YR, 6MO, ORAL
     Route: 048
  2. GLYBURIDE [Concomitant]

REACTIONS (2)
  - MYELOPATHY [None]
  - VITAMIN B12 DEFICIENCY [None]
